FAERS Safety Report 21607638 (Version 1)
Quarter: 2022Q4

REPORT INFORMATION
  Report Type: Spontaneous
  Country: US (occurrence: US)
  Receive Date: 20221117
  Receipt Date: 20221117
  Transmission Date: 20230113
  Serious: No
  Sender: FDA-Public Use
  Company Number: US-009507513-2210USA007435

PATIENT
  Age: 10 Year
  Sex: Female

DRUGS (7)
  1. TEMODAR [Suspect]
     Active Substance: TEMOZOLOMIDE
     Indication: Ependymoma
     Dosage: UNK
     Route: 048
  2. CYCLOPHOSPHAMIDE [Concomitant]
     Active Substance: CYCLOPHOSPHAMIDE
     Indication: Ependymoma
     Dosage: UNK
  3. ETOPOSIDE [Concomitant]
     Active Substance: ETOPOSIDE
     Indication: Ependymoma
     Dosage: UNK
  4. DOXORUBICIN [Concomitant]
     Active Substance: DOXORUBICIN
     Indication: Ependymoma
     Dosage: UNK
  5. VINCRISTINE [Concomitant]
     Active Substance: VINCRISTINE
     Indication: Ependymoma
     Dosage: UNK
  6. CISPLATIN [Concomitant]
     Active Substance: CISPLATIN
     Indication: Ependymoma
     Dosage: UNK
  7. METHOTREXATE [Concomitant]
     Active Substance: METHOTREXATE
     Indication: Ependymoma
     Dosage: UNK

REACTIONS (1)
  - Product use in unapproved indication [Unknown]
